FAERS Safety Report 10430616 (Version 1)
Quarter: 2014Q3

REPORT INFORMATION
  Report Type: Spontaneous
  Country: US (occurrence: None)
  Receive Date: 20140903
  Receipt Date: 20140903
  Transmission Date: 20150326
  Serious: No
  Sender: FDA-Public Use
  Company Number: None

PATIENT
  Age: 80 Year
  Sex: Male
  Weight: 76.9 kg

DRUGS (1)
  1. BRIMONIDINE [Suspect]
     Active Substance: BRIMONIDINE\BRIMONIDINE TARTRATE
     Indication: ILL-DEFINED DISORDER
     Dosage: INSTILL ONE DROP IN EACH EYE TWICE A DAY.
     Route: 047
     Dates: start: 20120301, end: 20140829

REACTIONS (1)
  - Keratitis [None]

NARRATIVE: CASE EVENT DATE: 20140829
